FAERS Safety Report 19271070 (Version 2)
Quarter: 2021Q2

REPORT INFORMATION
  Report Type: Report from Study
  Country: IT (occurrence: IT)
  Receive Date: 20210518
  Receipt Date: 20210528
  Transmission Date: 20210717
  Serious: Yes (Death)
  Sender: FDA-Public Use
  Company Number: IT-PFIZER INC-2021540051

PATIENT
  Sex: Female

DRUGS (4)
  1. CARBOPLATIN. [Suspect]
     Active Substance: CARBOPLATIN
     Indication: OVARIAN CANCER
     Dosage: UNK, CYCLIC (AUC (AREA UNDER THE CURVE) 5, ON DAY 1 FOR SIX 3?WEEKLY CYCLES)
  2. BEVACIZUMAB. [Suspect]
     Active Substance: BEVACIZUMAB
     Dosage: 15 MG/KG, CYCLIC (SINGLE AGENT,UP TO A MAXIMUM OF 22 TOTAL CYCLES)
  3. PACLITAXEL. [Suspect]
     Active Substance: PACLITAXEL
     Indication: OVARIAN CANCER
     Dosage: 175 MG/M2, CYCLIC
  4. BEVACIZUMAB. [Suspect]
     Active Substance: BEVACIZUMAB
     Indication: OVARIAN CANCER
     Dosage: 15 MG/KG, CYCLIC (ON DAY 1 FOR SIX 3?WEEKLY CYCLES)

REACTIONS (1)
  - Pulmonary embolism [Fatal]
